FAERS Safety Report 6170455-3 (Version None)
Quarter: 2009Q2

REPORT INFORMATION
  Report Type: 
  Country: None (occurrence: None)
  Receive Date: 20090428
  Receipt Date: 20090209
  Transmission Date: 20091009
  Serious: No
  Sender: FDA-Public Use
  Company Number: US-BAYER-200910945BCC

PATIENT
  Age: 2 Year
  Sex: Male

DRUGS (2)
  1. ALEVE (CAPLET) [Suspect]
     Indication: ACCIDENTAL DRUG INTAKE BY CHILD
     Dosage: UNIT DOSE: 220 MG
     Dates: start: 20090209
  2. ALBUTEROL [Concomitant]

REACTIONS (1)
  - NO ADVERSE EVENT [None]
